FAERS Safety Report 5243190-3 (Version None)
Quarter: 2007Q1

REPORT INFORMATION
  Report Type: 
  Country: None (occurrence: None)
  Receive Date: 20070215
  Receipt Date: 20061117
  Transmission Date: 20070707
  Serious: No
  Sender: FDA-Public Use
  Company Number: 2456

PATIENT
  Sex: Male

DRUGS (1)
  1. METFORMIN HCL [Suspect]
     Dosage: 500 MG, TID, PO
     Route: 048
     Dates: start: 20060408

REACTIONS (2)
  - BLOOD GLUCOSE INCREASED [None]
  - DRUG INEFFECTIVE [None]
